FAERS Safety Report 23551534 (Version 1)
Quarter: 2024Q1

REPORT INFORMATION
  Report Type: Spontaneous
  Country: US (occurrence: US)
  Receive Date: 20240222
  Receipt Date: 20240222
  Transmission Date: 20240410
  Serious: No
  Sender: FDA-Public Use
  Company Number: US-E2BLSMVVAL-SPO/USA/24/0002465

PATIENT
  Age: 33 Year
  Sex: Female

DRUGS (3)
  1. ACCUTANE [Suspect]
     Active Substance: ISOTRETINOIN
     Indication: Product used for unknown indication
  2. OTC Retinol [Concomitant]
     Indication: Product used for unknown indication
  3. LILETTA [Concomitant]
     Active Substance: LEVONORGESTREL
     Indication: Product used for unknown indication

REACTIONS (4)
  - Menstruation irregular [Unknown]
  - Contraception [Unknown]
  - Disease progression [Unknown]
  - Drug ineffective [Unknown]
